FAERS Safety Report 8544112-X (Version None)
Quarter: 2012Q3

REPORT INFORMATION
  Report Type: 
  Country: None (occurrence: None)
  Receive Date: 20120727
  Receipt Date: 20120723
  Transmission Date: 20120928
  Serious: Yes (Other)
  Sender: FDA-Public Use
  Company Number: GB-PFIZER INC-2012176980

PATIENT
  Age: 43 Year
  Sex: Female
  Weight: 73.482 kg

DRUGS (3)
  1. CETIRIZINE HCL [Concomitant]
     Dates: start: 20120711
  2. ACETAMINOPHEN AND CODEINE PHOSPHATE [Concomitant]
     Dates: start: 20120628, end: 20120629
  3. METRONIDAZOLE [Suspect]
     Dates: start: 20120711

REACTIONS (2)
  - DRUG ERUPTION [None]
  - RASH [None]
